FAERS Safety Report 7019103-0 (Version None)
Quarter: 2010Q3

REPORT INFORMATION
  Report Type: 
  Country: None (occurrence: None)
  Receive Date: 20100928
  Receipt Date: 20100922
  Transmission Date: 20110219
  Serious: Yes (Hospitalization, Other)
  Sender: FDA-Public Use
  Company Number: A0883564A

PATIENT
  Age: 66 Year
  Sex: Female

DRUGS (6)
  1. TYKERB [Suspect]
     Indication: BREAST CANCER METASTATIC
     Dosage: 1250MG UNKNOWN
     Route: 048
     Dates: start: 20100601
  2. XELODA [Concomitant]
  3. ZOMETA [Concomitant]
  4. PEPCID [Concomitant]
  5. VICODIN [Concomitant]
  6. ZOCOR [Concomitant]

REACTIONS (1)
  - PERICARDIAL EFFUSION [None]
